FAERS Safety Report 5273925-5 (Version None)
Quarter: 2007Q1

REPORT INFORMATION
  Report Type: 
  Country: None (occurrence: None)
  Receive Date: 20070323
  Receipt Date: 20070312
  Transmission Date: 20070707
  Serious: Yes (Hospitalization)
  Sender: FDA-Public Use
  Company Number: 2007SE01435

PATIENT
  Age: 27348 Day
  Sex: Male

DRUGS (3)
  1. CRESTOR [Suspect]
     Indication: DYSLIPIDAEMIA
     Route: 048
     Dates: start: 20070202, end: 20070301
  2. ATORVASTATIN CALCIUM [Suspect]
     Indication: DYSLIPIDAEMIA
     Route: 048
     Dates: start: 20060201, end: 20070201
  3. CYMBALTA [Concomitant]

REACTIONS (6)
  - BLOOD CREATINE PHOSPHOKINASE INCREASED [None]
  - MUSCULOSKELETAL DISORDER [None]
  - MUSCULOSKELETAL PAIN [None]
  - MYOGLOBIN BLOOD INCREASED [None]
  - PAIN IN EXTREMITY [None]
  - SENSATION OF HEAVINESS [None]
